FAERS Safety Report 7604457-4 (Version None)
Quarter: 2011Q3

REPORT INFORMATION
  Report Type: 
  Country: None (occurrence: None)
  Receive Date: 20110712
  Receipt Date: 20110628
  Transmission Date: 20111222
  Serious: Yes (Other)
  Sender: FDA-Public Use
  Company Number: PHHY2011NL61291

PATIENT
  Sex: Female

DRUGS (3)
  1. NAPROXEN [Suspect]
     Dosage: 500 MG, TID
     Dates: start: 20110119, end: 20110124
  2. NAPROXEN [Suspect]
     Dosage: UNK UKN, UNK
     Dates: start: 20110219
  3. PREDNISONE [Suspect]
     Dosage: UNK UKN, UNK

REACTIONS (3)
  - EYE PAIN [None]
  - OPTIC NEURITIS [None]
  - MALAISE [None]
